FAERS Safety Report 4720359-5 (Version None)
Quarter: 2005Q3

REPORT INFORMATION
  Report Type: 
  Country: None (occurrence: None)
  Receive Date: 20050721
  Receipt Date: 20021113
  Transmission Date: 20060218
  Serious: Yes (Death, Life-Threatening, Hospitalization)
  Sender: FDA-Public Use
  Company Number: DE-MERCK-0211DEU00044

PATIENT
  Age: 36 Year
  Sex: Female

DRUGS (3)
  1. VIOXX [Suspect]
     Indication: ARTHROPATHY
     Route: 048
     Dates: start: 20000101, end: 20020701
  2. VIOXX [Suspect]
     Indication: PAIN
     Route: 048
     Dates: start: 20000101, end: 20020701
  3. ACETAMINOPHEN [Concomitant]
     Route: 065

REACTIONS (6)
  - ABDOMINAL PAIN [None]
  - COMPLICATIONS OF TRANSPLANTED LIVER [None]
  - DIZZINESS [None]
  - HEPATIC FAILURE [None]
  - HEPATITIS FULMINANT [None]
  - MALAISE [None]
